FAERS Safety Report 5421608-0 (Version None)
Quarter: 2007Q3

REPORT INFORMATION
  Report Type: 
  Country: None (occurrence: None)
  Receive Date: 20070718
  Receipt Date: 20070320
  Transmission Date: 20080115
  Serious: Yes (Other)
  Sender: FDA-Public Use
  Company Number: 2007002092

PATIENT
  Age: 74 Year
  Sex: Male

DRUGS (1)
  1. CELEBREX [Suspect]
     Indication: LIMB INJURY
     Dosage: (100 MG, FREQUENCY: QD,BID)
     Dates: start: 19990518

REACTIONS (1)
  - CEREBROVASCULAR ACCIDENT [None]
